FAERS Safety Report 21067672 (Version 3)
Quarter: 2024Q1

REPORT INFORMATION
  Report Type: Spontaneous
  Country: ES (occurrence: ES)
  Receive Date: 20220712
  Receipt Date: 20240129
  Transmission Date: 20240410
  Serious: Yes (Hospitalization, Other)
  Sender: FDA-Public Use
  Company Number: ES-EMA-DD-20220627-7182781-082458

PATIENT
  Age: 75 Year
  Sex: Male

DRUGS (15)
  1. CLOPIDOGREL [Interacting]
     Active Substance: CLOPIDOGREL BISULFATE
     Indication: Cardiovascular disorder
     Dosage: 75 MILLIGRAM, ONCE A DAY (0/1/0, 2 YEARS AGO)
     Route: 048
  2. DONEPEZIL HYDROCHLORIDE [Suspect]
     Active Substance: DONEPEZIL HYDROCHLORIDE
     Indication: Dementia
     Dosage: 10 MILLIGRAM, ONCE A DAY (1/0/0, ONE YEAR AGO)
     Route: 048
  3. METFORMIN [Interacting]
     Active Substance: METFORMIN HYDROCHLORIDE
     Dosage: 1 GRAM, EVERY OTHER DAY (1/0/1)
     Route: 048
  4. PANTOPRAZOLE SODIUM [Interacting]
     Active Substance: PANTOPRAZOLE SODIUM
     Indication: Gastrointestinal disorder prophylaxis
     Dosage: 40 MILLIGRAM, ONCE A DAY (1/0/0, UNK)
     Route: 048
  5. ACETAMINOPHEN [Suspect]
     Active Substance: ACETAMINOPHEN
     Indication: Pain
     Dosage: 1000 MILLIGRAM, AS NECESSARY (ON DEMAND)
     Route: 048
  6. REPAGLINIDE [Interacting]
     Active Substance: REPAGLINIDE
     Indication: Diabetes mellitus
     Dosage: 2 MILLIGRAM, EVERY 5 DAYS (1/0/1; FREQUENCY OF ADMINISTRATION 2/2/1)
     Route: 048
  7. PREDNISONE [Interacting]
     Active Substance: PREDNISONE
     Indication: Gastrointestinal inflammation
     Dosage: 0.5 UNK
     Route: 065
  8. PREDNISONE [Interacting]
     Active Substance: PREDNISONE
     Indication: Inflammatory bowel disease
     Dosage: UNK (FREQUENCY OF ADMINISTRATION 0.5/0.5, FOR 3 MONTHS)
     Route: 048
  9. VILDAGLIPTIN [Concomitant]
     Active Substance: VILDAGLIPTIN
     Indication: Diabetes mellitus
     Dosage: 50 MILLIGRAM, EVERY OTHER DAY (0/1/1)
     Route: 048
  10. VIDARABINE [Concomitant]
     Active Substance: VIDARABINE
     Indication: Diabetes mellitus
     Dosage: 50 MILLIGRAM, TWO TIMES A DAY ( (0/1/1))
     Route: 065
  11. VITAMIN D [Concomitant]
     Active Substance: VITAMIN D NOS
     Indication: Osteoporosis prophylaxis
     Dosage: UNK (1000 MG/800 UI, FREQUENCY OF ADMINISTRATION 1/0/0, FOR 3  MONTHS)
     Route: 065
  12. CALCIUM\CHOLECALCIFEROL [Concomitant]
     Active Substance: CALCIUM\CHOLECALCIFEROL
     Indication: Steroid therapy
     Dosage: UNK (1/0/0, THREEMONTHS AGO)
     Route: 048
  13. FOLIC ACID [Concomitant]
     Active Substance: FOLIC ACID
     Indication: Vitamin B complex deficiency
     Dosage: 5 MILLIGRAM, ONCE A DAY (FREQUENCY OF ADMINISTRATION: 0/1/0)
     Route: 065
  14. FOLIC ACID [Concomitant]
     Active Substance: FOLIC ACID
     Indication: Folate deficiency
     Dosage: 5 MILLIGRAM (0/1/0)
     Route: 048
  15. DONEPEZIL [Suspect]
     Active Substance: DONEPEZIL
     Indication: Dementia
     Route: 065

REACTIONS (12)
  - Abdominal pain [Recovering/Resolving]
  - Diarrhoea [Recovering/Resolving]
  - Blood triglycerides increased [Recovering/Resolving]
  - Flatulence [Recovering/Resolving]
  - Anal incontinence [Recovering/Resolving]
  - Drug interaction [Recovering/Resolving]
  - Hyperglycaemia [Recovering/Resolving]
  - Glycosylated haemoglobin increased [Recovering/Resolving]
  - Crohn^s disease [Unknown]
  - Product prescribing issue [Recovering/Resolving]
  - Contraindication to medical treatment [Recovering/Resolving]
  - Blood glucose increased [Recovering/Resolving]
